FAERS Safety Report 9170948 (Version 2)
Quarter: 2013Q2

REPORT INFORMATION
  Report Type: Spontaneous
  Country: DE (occurrence: None)
  Receive Date: 20130312
  Receipt Date: 20130404
  Transmission Date: 20140414
  Serious: Yes (Other)
  Sender: FDA-Public Use
  Company Number: ACO_34702_2013

PATIENT
  Age: 51 Year
  Sex: Female

DRUGS (1)
  1. FAMPYRA [Suspect]
     Indication: SPINOCEREBELLAR ATAXIA
     Route: 048
     Dates: start: 201206

REACTIONS (2)
  - Cutaneous vasculitis [None]
  - Off label use [None]
